FAERS Safety Report 5785311-X (Version None)
Quarter: 2008Q2

REPORT INFORMATION
  Report Type: 
  Country: None (occurrence: None)
  Receive Date: 20080605
  Receipt Date: 20080425
  Transmission Date: 20081010
  Serious: No
  Sender: FDA-Public Use
  Company Number: A0724757A

PATIENT
  Age: 33 Year
  Sex: Female

DRUGS (6)
  1. ALLI [Suspect]
     Dates: start: 20080422
  2. PERCOCET [Concomitant]
  3. MUSCLE RELAXANT [Concomitant]
  4. TYLENOL [Concomitant]
  5. GAS X [Concomitant]
  6. ONE A DAY WOMEN'S FORMULA [Concomitant]

REACTIONS (2)
  - FREQUENT BOWEL MOVEMENTS [None]
  - PAIN [None]
